FAERS Safety Report 20796414 (Version 1)
Quarter: 2022Q2

REPORT INFORMATION
  Report Type: Spontaneous
  Country: US (occurrence: US)
  Receive Date: 20220506
  Receipt Date: 20220506
  Transmission Date: 20220721
  Serious: Yes (Other)
  Sender: FDA-Public Use
  Company Number: US-BRISTOL-MYERS SQUIBB COMPANY-2022-030656

PATIENT
  Age: 82 Year
  Sex: Female
  Weight: 59.874 kg

DRUGS (1)
  1. ELIQUIS [Suspect]
     Active Substance: APIXABAN
     Indication: Protein C deficiency
     Route: 048

REACTIONS (2)
  - Cataract [Unknown]
  - Intentional product use issue [Unknown]
